FAERS Safety Report 13417841 (Version 2)
Quarter: 2017Q2

REPORT INFORMATION
  Report Type: Report from Study
  Country: CR (occurrence: CR)
  Receive Date: 20170406
  Receipt Date: 20170424
  Transmission Date: 20170830
  Serious: Yes (Other)
  Sender: FDA-Public Use
  Company Number: PHHY2017CR050188

PATIENT
  Age: 53 Year
  Sex: Female

DRUGS (5)
  1. SANDOSTATIN LAR DEPOT [Suspect]
     Active Substance: OCTREOTIDE ACETATE
     Indication: PITUITARY TUMOUR BENIGN
     Dosage: UNK
     Route: 065
     Dates: start: 2010
  2. INSULIN [Concomitant]
     Active Substance: INSULIN NOS
     Indication: PRODUCT USED FOR UNKNOWN INDICATION
     Route: 065
  3. METFORMIN [Concomitant]
     Active Substance: METFORMIN HYDROCHLORIDE
     Indication: PRODUCT USED FOR UNKNOWN INDICATION
     Route: 065
  4. SANDOSTATIN LAR DEPOT [Suspect]
     Active Substance: OCTREOTIDE ACETATE
     Dosage: UNK
     Route: 065
     Dates: start: 20170328
  5. HYDROCORTISONE. [Concomitant]
     Active Substance: HYDROCORTISONE
     Indication: PRODUCT USED FOR UNKNOWN INDICATION
     Route: 065

REACTIONS (3)
  - Neoplasm progression [Unknown]
  - Drug ineffective [Unknown]
  - Emotional disorder [Unknown]
